FAERS Safety Report 19459775 (Version 2)
Quarter: 2021Q3

REPORT INFORMATION
  Report Type: Spontaneous
  Country: CH (occurrence: CH)
  Receive Date: 20210624
  Receipt Date: 20210709
  Transmission Date: 20211014
  Serious: Yes (Hospitalization, Other)
  Sender: FDA-Public Use
  Company Number: CH-SA-2021SA197939

PATIENT
  Age: 72 Year
  Sex: Male
  Weight: 76 kg

DRUGS (5)
  1. RISPERIDON [Concomitant]
     Active Substance: RISPERIDONE
     Dosage: 2 MG, QD
     Route: 048
     Dates: start: 20210312, end: 20210420
  2. SYMBICORT [Concomitant]
     Active Substance: BUDESONIDE\FORMOTEROL FUMARATE DIHYDRATE
     Dosage: 2 PUFF IN THE MORNING, 2 PUFF IN THE EVENING
  3. FEXOFENADINE [Suspect]
     Active Substance: FEXOFENADINE HYDROCHLORIDE
     Indication: ALLERGY PROPHYLAXIS
     Dosage: UNK, QD
     Route: 048
     Dates: end: 20210510
  4. RISPERIDON [Concomitant]
     Active Substance: RISPERIDONE
     Dosage: 2 MG, QD
     Route: 048
     Dates: start: 20210510, end: 20210525
  5. ZOLPIDEM [Concomitant]
     Active Substance: ZOLPIDEM TARTRATE
     Dosage: 5MG
     Route: 048
     Dates: start: 20210510, end: 20210525

REACTIONS (12)
  - Abnormal dreams [Unknown]
  - Insomnia [Unknown]
  - Headache [Unknown]
  - Hallucination [Unknown]
  - Dizziness [Unknown]
  - Circulatory collapse [Unknown]
  - Palpitations [Unknown]
  - Nightmare [Unknown]
  - Chest discomfort [Unknown]
  - Delusion [Unknown]
  - Nervousness [Unknown]
  - Dry mouth [Unknown]

NARRATIVE: CASE EVENT DATE: 20210510
